FAERS Safety Report 6773131-9 (Version None)
Quarter: 2010Q2

REPORT INFORMATION
  Report Type: 
  Country: None (occurrence: None)
  Receive Date: 20100616
  Receipt Date: 20100326
  Transmission Date: 20101027
  Serious: No
  Sender: FDA-Public Use
  Company Number: US-TYCO HEALTHCARE/MALLINCKRODT-T201000909

PATIENT
  Sex: Female

DRUGS (10)
  1. ULTRATAG [Suspect]
     Indication: RADIOISOTOPE SCAN
  2. ULTRA-TECHNEKOW [Concomitant]
     Indication: RADIOISOTOPE SCAN
  3. ASPIRIN [Concomitant]
  4. SIMVASTATIN [Concomitant]
  5. PROPRANOLOL [Concomitant]
  6. LOSARTAN POTASSIUM [Concomitant]
  7. METFORMIN [Concomitant]
  8. LEVOTHYROXINE SODIUM [Concomitant]
  9. LORAZEPAM [Concomitant]
  10. COMPAZINE [Concomitant]

REACTIONS (1)
  - DRUG INEFFECTIVE [None]
